FAERS Safety Report 5488180-0 (Version None)
Quarter: 2007Q4

REPORT INFORMATION
  Report Type: 
  Country: None (occurrence: None)
  Receive Date: 20071017
  Receipt Date: 20071009
  Transmission Date: 20080405
  Serious: Yes (Hospitalization)
  Sender: FDA-Public Use
  Company Number: US-ELI_LILLY_AND_COMPANY-US200710002329

PATIENT
  Sex: Male
  Weight: 72.562 kg

DRUGS (3)
  1. ZYPREXA [Suspect]
     Dosage: 2.5 MG, UNK
     Dates: start: 20010220, end: 20061116
  2. ZYPREXA [Suspect]
     Dosage: 10 MG, UNK
     Dates: end: 20061116
  3. FLUOXETINE [Concomitant]

REACTIONS (5)
  - BLOOD CHOLESTEROL ABNORMAL [None]
  - BLOOD TRIGLYCERIDES INCREASED [None]
  - CORONARY ARTERY BYPASS [None]
  - DIABETES MELLITUS [None]
  - HYPERGLYCAEMIA [None]
